FAERS Safety Report 15375055 (Version 1)
Quarter: 2018Q3

REPORT INFORMATION
  Report Type: Spontaneous
  Country: CH (occurrence: CH)
  Receive Date: 20180912
  Receipt Date: 20180912
  Transmission Date: 20181010
  Serious: Yes (Hospitalization, Other)
  Sender: FDA-Public Use
  Company Number: CH-PFIZER INC-2018359656

PATIENT
  Age: 27 Year
  Sex: Female

DRUGS (33)
  1. ELYFEM 30 [Concomitant]
     Dosage: 1 DF, DAILY
     Dates: start: 20170830
  2. SPIRICORT [Concomitant]
     Active Substance: PREDNISOLONE
     Dosage: 100 MG, UNK
     Route: 048
     Dates: start: 20170828, end: 20170917
  3. METHOTREXATE SODIUM. [Suspect]
     Active Substance: METHOTREXATE SODIUM
     Dosage: 15 MG, IN TOTAL
     Route: 037
     Dates: start: 20170904, end: 20170904
  4. UROMITEXAN [Suspect]
     Active Substance: MESNA
     Dosage: 1250 MG, IN TOTAL
     Route: 042
     Dates: start: 20170918, end: 20170918
  5. ZANTAC [Concomitant]
     Active Substance: RANITIDINE HYDROCHLORIDE
     Indication: SUPPORTIVE CARE
     Dosage: 50 MG/ 5 ML
  6. VINCRISTINE SULFATE. [Suspect]
     Active Substance: VINCRISTINE SULFATE
     Indication: LYMPHOCYTIC LEUKAEMIA
     Dosage: 2 MG, IN TOTAL
     Route: 042
     Dates: start: 20170904, end: 20170904
  7. VINCRISTINE SULFATE. [Suspect]
     Active Substance: VINCRISTINE SULFATE
     Dosage: 2 MG, IN TOTAL
     Route: 042
     Dates: start: 20170911, end: 20170911
  8. MABTHERA [Suspect]
     Active Substance: RITUXIMAB
     Dosage: 650 MG, IN TOTAL
     Route: 042
     Dates: start: 20170905, end: 20170905
  9. MABTHERA [Suspect]
     Active Substance: RITUXIMAB
     Dosage: 650 MG, IN TOTAL
     Route: 042
     Dates: start: 20170921, end: 20170921
  10. ENDOXAN [CYCLOPHOSPHAMIDE MONOHYDRATE] [Suspect]
     Active Substance: CYCLOPHOSPHAMIDE
     Indication: LYMPHOCYTIC LEUKAEMIA
     Dosage: 1275 MG, IN TOTAL
     Route: 042
     Dates: start: 20170904, end: 20170904
  11. DAUNOBLASTIN [Suspect]
     Active Substance: DAUNORUBICIN HYDROCHLORIDE
     Indication: LYMPHOCYTIC LEUKAEMIA
     Dosage: 90.53 MG, DAILY
     Route: 042
     Dates: start: 20170904, end: 20170906
  12. DAUNOBLASTIN [Suspect]
     Active Substance: DAUNORUBICIN HYDROCHLORIDE
     Dosage: 53.12 MG, DAILY
     Route: 042
     Dates: start: 20170918, end: 20170919
  13. CYTOSAR [Suspect]
     Active Substance: CYTARABINE
     Indication: LYMPHOCYTIC LEUKAEMIA
     Dosage: 30 MG, IN TOTAL
     Route: 037
     Dates: start: 20170904, end: 20170904
  14. METHOTREXATE SODIUM. [Suspect]
     Active Substance: METHOTREXATE SODIUM
     Dosage: 15 MG, IN TOTAL
     Route: 037
     Dates: start: 20170830, end: 20170830
  15. MABTHERA [Suspect]
     Active Substance: RITUXIMAB
     Dosage: 650 MG, IN TOTAL
     Route: 042
     Dates: start: 20170912, end: 20170912
  16. ZYLORIC [Concomitant]
     Active Substance: ALLOPURINOL
     Indication: SUPPORTIVE CARE
     Dosage: 300 MG, UNK
     Route: 048
  17. DAFALGAN [Concomitant]
     Active Substance: ACETAMINOPHEN
     Indication: SUPPORTIVE CARE
     Dosage: 1 G, UNK
  18. ONDANSETRON [Concomitant]
     Active Substance: ONDANSETRON
     Indication: ANTIEMETIC SUPPORTIVE CARE
     Dosage: 8 MG/ 4 ML
  19. FORTECORTIN [DEXAMETHASONE] [Concomitant]
     Indication: ANTIEMETIC SUPPORTIVE CARE
     Dosage: 8 MG, UNK
  20. FILGRASTIM [Concomitant]
     Active Substance: FILGRASTIM
     Indication: SUPPORTIVE CARE
     Dosage: 30 MIO.
  21. CYTOSAR [Suspect]
     Active Substance: CYTARABINE
     Dosage: 30 MG, IN TOTAL
     Route: 037
     Dates: start: 20170912, end: 20170912
  22. ASPARAGINASE [Suspect]
     Active Substance: ASPARAGINASE
     Dosage: 9960 IU, IN TOTAL
     Route: 042
     Dates: start: 20170925, end: 20170925
  23. NEXIUM MUPS [ESOMEPRAZOLE MAGNESIUM] [Concomitant]
     Indication: SUPPORTIVE CARE
     Dosage: 40 MG, UNK
  24. PRIMPERAN [Concomitant]
     Active Substance: METOCLOPRAMIDE HYDROCHLORIDE
     Indication: SUPPORTIVE CARE
     Dosage: 10 MG, UNK
  25. SOLU?MEDROL [Concomitant]
     Active Substance: METHYLPREDNISOLONE SODIUM SUCCINATE
     Indication: SUPPORTIVE CARE
     Dosage: 125 MG, UNK
  26. TAVEGYL [Concomitant]
     Active Substance: CLEMASTINE FUMARATE
     Indication: SUPPORTIVE CARE
     Dosage: 2 MG/ 2 ML
  27. METHOTREXATE SODIUM. [Suspect]
     Active Substance: METHOTREXATE SODIUM
     Dosage: 15 MG, IN TOTAL
     Route: 037
     Dates: start: 20170912, end: 20170912
  28. VINCRISTINE SULFATE. [Suspect]
     Active Substance: VINCRISTINE SULFATE
     Dosage: 2 MG, IN TOTAL
     Route: 042
     Dates: start: 20170918, end: 20170918
  29. UROMITEXAN [Suspect]
     Active Substance: MESNA
     Indication: LYMPHOCYTIC LEUKAEMIA
     Dosage: 1275 MG, IN TOTAL
     Route: 042
     Dates: start: 20170904, end: 20170904
  30. ENDOXAN [CYCLOPHOSPHAMIDE MONOHYDRATE] [Suspect]
     Active Substance: CYCLOPHOSPHAMIDE
     Dosage: 1245 MG, IN TOTAL
     Route: 042
     Dates: start: 20170918, end: 20170918
  31. ASPARAGINASE [Suspect]
     Active Substance: ASPARAGINASE
     Dosage: 9960 IU, IN TOTAL
     Route: 042
     Dates: start: 20170927, end: 20170927
  32. MABTHERA [Suspect]
     Active Substance: RITUXIMAB
     Indication: LYMPHOCYTIC LEUKAEMIA
     Dosage: 650 MG, IN TOTAL
     Route: 042
     Dates: start: 20170831, end: 20170831
  33. ASPARAGINASE [Suspect]
     Active Substance: ASPARAGINASE
     Indication: LYMPHOCYTIC LEUKAEMIA
     Dosage: 9960 IU, UNK
     Route: 042
     Dates: start: 20170923, end: 20170923

REACTIONS (6)
  - Bone marrow failure [Recovered/Resolved]
  - Subileus [Recovered/Resolved]
  - Liver disorder [Unknown]
  - Ammonia increased [Recovering/Resolving]
  - Disseminated intravascular coagulation [Recovered/Resolved]
  - Neutropenic colitis [Recovered/Resolved]

NARRATIVE: CASE EVENT DATE: 20170905
